FAERS Safety Report 7901029-9 (Version None)
Quarter: 2011Q4

REPORT INFORMATION
  Report Type: 
  Country: None (occurrence: None)
  Receive Date: 20111108
  Receipt Date: 20111102
  Transmission Date: 20120403
  Serious: Yes (Other)
  Sender: FDA-Public Use
  Company Number: US-PFIZER INC-2011268653

PATIENT
  Sex: Female

DRUGS (1)
  1. MEDROL [Suspect]
     Dosage: 4 MG, UNK

REACTIONS (3)
  - POOR QUALITY DRUG ADMINISTERED [None]
  - CHROMATURIA [None]
  - RENAL DISORDER [None]
